FAERS Safety Report 4751599-7 (Version None)
Quarter: 2005Q3

REPORT INFORMATION
  Report Type: 
  Country: None (occurrence: None)
  Receive Date: 20050822
  Receipt Date: 20050822
  Transmission Date: 20060218
  Serious: Yes (Hospitalization)
  Sender: FDA-Public Use
  Company Number: None

PATIENT
  Age: 38 Year
  Sex: Male
  Weight: 78 kg

DRUGS (5)
  1. GEODON [Suspect]
     Indication: MENTAL DISORDER
     Dosage: 20 MG IM Q 12 HOUR
     Route: 030
     Dates: start: 20050630
  2. LITHIUM [Concomitant]
  3. DEPAKOTE [Concomitant]
  4. SEROQUEL [Concomitant]
  5. METHADONE HCL [Concomitant]

REACTIONS (4)
  - DYSTONIA [None]
  - LARYNGEAL DISORDER [None]
  - MUSCULOSKELETAL STIFFNESS [None]
  - SPEECH DISORDER [None]
